FAERS Safety Report 9168880 (Version 1)
Quarter: 2013Q1

REPORT INFORMATION
  Report Type: Spontaneous
  Country: US (occurrence: US)
  Receive Date: 20130318
  Receipt Date: 20130318
  Transmission Date: 20140127
  Serious: No
  Sender: FDA-Public Use
  Company Number: US-PFIZER INC-2013086947

PATIENT
  Age: 40 Year
  Sex: Female
  Weight: 64 kg

DRUGS (4)
  1. CORTISONE [Suspect]
     Indication: MUSCLE SPASMS
     Dosage: SINGLE INJECTION
     Dates: start: 20130312, end: 20130312
  2. CORTISONE [Suspect]
     Indication: NECK PAIN
  3. AXERT [Concomitant]
     Indication: MIGRAINE
     Dosage: 12.5 MG, UNK
  4. ANAPROX [Concomitant]
     Dosage: UNK

REACTIONS (2)
  - Injection site pain [Recovered/Resolved]
  - Pain [Recovered/Resolved]
